FAERS Safety Report 7149676-9 (Version None)
Quarter: 2010Q4

REPORT INFORMATION
  Report Type: 
  Country: None (occurrence: None)
  Receive Date: 20101209
  Receipt Date: 20101116
  Transmission Date: 20110411
  Serious: Yes (Other)
  Sender: FDA-Public Use
  Company Number: IL-AMGEN-ISRSP2010005770

PATIENT

DRUGS (6)
  1. ENBREL [Suspect]
     Indication: RHEUMATOID ARTHRITIS
     Dosage: 25 MG, 2X/DAY
     Dates: start: 20101109
  2. METHOTREXATE [Concomitant]
  3. ARCOXIA [Concomitant]
  4. TAMSULOSIN [Concomitant]
  5. OMEPRADEX [Concomitant]
  6. SALAZOPYRIN [Concomitant]

REACTIONS (1)
  - PROSTATE CANCER [None]
